FAERS Safety Report 10042581 (Version 2)
Quarter: 2014Q2

REPORT INFORMATION
  Report Type: Spontaneous
  Country: DE (occurrence: DE)
  Receive Date: 20140327
  Receipt Date: 20140501
  Transmission Date: 20141212
  Serious: Yes (Other)
  Sender: FDA-Public Use
  Company Number: DE-WATSON-2014-05579

PATIENT
  Sex: Female
  Weight: 59 kg

DRUGS (5)
  1. CARBOPLATIN ACTAVIS [Suspect]
     Indication: OVARIAN CANCER
     Dosage: 130 MG, DAILY
     Route: 042
     Dates: start: 20140129, end: 20140129
  2. CARBOPLATIN ACTAVIS [Suspect]
     Dosage: 140 MG, DAILY
     Route: 042
     Dates: start: 20140207, end: 20140207
  3. CARBOPLATIN ACTAVIS [Suspect]
     Dosage: 130 MG, DAILY
     Route: 042
     Dates: start: 20140217, end: 20140217
  4. CARBOPLATIN ACTAVIS [Suspect]
     Dosage: 140 MG, DAILY
     Route: 042
     Dates: start: 20140227, end: 20140227
  5. CARBOPLATIN ACTAVIS [Suspect]
     Dosage: 140 MG, DAILY
     Route: 042
     Dates: start: 20140310, end: 20140310

REACTIONS (2)
  - Neoplasm progression [Not Recovered/Not Resolved]
  - Drug ineffective [Not Recovered/Not Resolved]
